FAERS Safety Report 8976952 (Version 4)
Quarter: 2018Q3

REPORT INFORMATION
  Report Type: Spontaneous
  Country: JP (occurrence: JP)
  Receive Date: 20121220
  Receipt Date: 20180904
  Transmission Date: 20181010
  Serious: Yes (Hospitalization)
  Sender: FDA-Public Use
  Company Number: JP-NOVOPROD-366749

PATIENT
  Age: 4 Year
  Sex: Male
  Weight: 13 kg

DRUGS (3)
  1. NORDITROPIN [Suspect]
     Active Substance: SOMATROPIN
     Dosage: 0.4 MG, QD
     Route: 058
     Dates: start: 20120125
  2. NORDITROPIN [Suspect]
     Active Substance: SOMATROPIN
     Dosage: 0.5 MG, QD
     Route: 058
     Dates: start: 20120516, end: 20120904
  3. NORDITROPIN [Suspect]
     Active Substance: SOMATROPIN
     Indication: BODY HEIGHT BELOW NORMAL
     Dosage: 0.35 MG, QD
     Route: 058
     Dates: start: 20110724

REACTIONS (1)
  - Acute lymphocytic leukaemia [Recovered/Resolved]

NARRATIVE: CASE EVENT DATE: 20120905
